FAERS Safety Report 6761499-9 (Version None)
Quarter: 2010Q2

REPORT INFORMATION
  Report Type: 
  Country: None (occurrence: None)
  Receive Date: 20100607
  Receipt Date: 20100525
  Transmission Date: 20101027
  Serious: Yes (Other)
  Sender: FDA-Public Use
  Company Number: DSA_43115_2010

PATIENT
  Sex: Female

DRUGS (4)
  1. XENAZINE [Suspect]
     Indication: HUNTINGTON'S CHOREA
     Dosage: 12.5 MG BID ORAL) (12.5 MG QD ORAL)
     Route: 048
     Dates: start: 20100401, end: 20100412
  2. XENAZINE [Suspect]
     Indication: HUNTINGTON'S CHOREA
     Dosage: 12.5 MG BID ORAL) (12.5 MG QD ORAL)
     Route: 048
     Dates: start: 20100426, end: 20100430
  3. MELATONIN [Concomitant]
  4. RISPERDAL [Concomitant]

REACTIONS (2)
  - RASH [None]
  - SLEEP DISORDER [None]
